FAERS Safety Report 10478154 (Version 1)
Quarter: 2014Q3

REPORT INFORMATION
  Report Type: Spontaneous
  Country: US (occurrence: None)
  Receive Date: 20140925
  Receipt Date: 20140925
  Transmission Date: 20150326
  Serious: Yes (Other)
  Sender: FDA-Public Use
  Company Number: None

PATIENT
  Age: 73 Year
  Sex: Male
  Weight: 68.04 kg

DRUGS (12)
  1. ANDROGEL [Suspect]
     Active Substance: TESTOSTERONE
     Indication: BLOOD TESTOSTERONE DECREASED
     Dosage: 20.25 MG ????, 2 ????, 1X IN AM, ON THE SKIN
     Dates: start: 20140801, end: 20140811
  2. ALLPORINOL [Concomitant]
  3. ZOLORIN [Concomitant]
  4. FISH OIL [Concomitant]
     Active Substance: FISH OIL
  5. CHORNCO OIEDEO (MEDIUM HERB) [Concomitant]
  6. CHRONICIUM [Concomitant]
  7. VITAMIN A [Concomitant]
     Active Substance: VITAMIN A
  8. VITAMIN B COMPLEX [Concomitant]
     Active Substance: CYANOCOBALAMIN\DEXPANTHENOL\NIACINAMIDE\PYRIDOXINE HYDROCHLORIDE\RIBOFLAVIN 5^-PHOSPHATE SODIUM\THIAMINE HYDROCHLORIDE\VITAMIN B COMPLEX
  9. ZINC [Concomitant]
     Active Substance: ZINC\ZINC CHLORIDE
  10. CG O E [Concomitant]
  11. MAGNESIUM [Concomitant]
     Active Substance: MAGNESIUM
  12. EUROCIT K [Concomitant]

REACTIONS (4)
  - Urinary incontinence [None]
  - Chills [None]
  - Pollakiuria [None]
  - Nasopharyngitis [None]

NARRATIVE: CASE EVENT DATE: 20140810
